FAERS Safety Report 15339360 (Version 1)
Quarter: 2018Q4

REPORT INFORMATION
  Report Type: Spontaneous
  Country: FR (occurrence: FR)
  Receive Date: 20180831
  Receipt Date: 20180831
  Transmission Date: 20190204
  Serious: Yes (Hospitalization)
  Sender: FDA-Public Use
  Company Number: FR-B. BRAUN MEDICAL INC.-2054526

PATIENT
  Age: 83 Year
  Sex: Female
  Weight: 89 kg

DRUGS (13)
  1. NEFOPAM HYDROCHLORIDE [Suspect]
     Active Substance: NEFOPAM HYDROCHLORIDE
     Route: 042
     Dates: start: 20180624, end: 20180628
  2. PHYTOMENADIONE [Concomitant]
     Active Substance: PHYTONADIONE
  3. ATORVASTATINE [Suspect]
     Active Substance: ATORVASTATIN
     Route: 042
     Dates: end: 20180627
  4. CEFTRIAXONE SODIUM. [Suspect]
     Active Substance: CEFTRIAXONE SODIUM
     Route: 042
     Dates: start: 20180625, end: 20180627
  5. CALCIPARINE [Concomitant]
     Active Substance: HEPARIN CALCIUM
  6. PANTOPRAZOLE [Concomitant]
     Active Substance: PANTOPRAZOLE
  7. PHOCYTAN [Concomitant]
     Active Substance: .ALPHA.-GLUCOSE-1-PHOSPHATE
  8. AMPHOTERICIN B. [Suspect]
     Active Substance: AMPHOTERICIN B
     Route: 048
     Dates: start: 20180627, end: 20180628
  9. ANASTROZOLE. [Suspect]
     Active Substance: ANASTROZOLE
     Route: 048
     Dates: start: 20180626, end: 20180628
  10. LORAZEPAM. [Suspect]
     Active Substance: LORAZEPAM
     Route: 048
     Dates: end: 20180627
  11. TRAMADOL HYDROCHLORIDE. [Suspect]
     Active Substance: TRAMADOL HYDROCHLORIDE
     Route: 042
     Dates: start: 20180627, end: 20180628
  12. TRIMEBUTINE [Concomitant]
     Active Substance: TRIMEBUTINE
  13. METRONIDAZOLE INJECTION 0.5% IN GLASS [Suspect]
     Active Substance: METRONIDAZOLE
     Indication: INFECTION
     Route: 042
     Dates: start: 20180625, end: 20180628

REACTIONS (1)
  - Confusional state [Recovered/Resolved]

NARRATIVE: CASE EVENT DATE: 20180628
